FAERS Safety Report 7323603-3 (Version None)
Quarter: 2011Q1

REPORT INFORMATION
  Report Type: 
  Country: None (occurrence: None)
  Receive Date: 20110301
  Receipt Date: 20110223
  Transmission Date: 20110831
  Serious: Yes (Death, Life-Threatening, Other)
  Sender: FDA-Public Use
  Company Number: JP-PFIZER INC-2010102224

PATIENT
  Age: 61 Year
  Sex: Male
  Weight: 80 kg

DRUGS (13)
  1. PELTAZON [Concomitant]
     Indication: PAIN
     Dosage: 50 MG, 3X/DAY
     Route: 048
     Dates: start: 20100802, end: 20100815
  2. NAUZELIN [Concomitant]
     Indication: NAUSEA
     Dosage: 60 MG, AS NEEDED
     Route: 054
     Dates: start: 20100804, end: 20100806
  3. MUCOSTA [Concomitant]
     Dosage: 100 MG, 3X/DAY
     Route: 048
     Dates: start: 20100715, end: 20100820
  4. LOXONIN [Concomitant]
     Indication: PAIN
     Dosage: 60 MG, 3X/DAY
     Route: 048
     Dates: start: 20100715, end: 20100820
  5. VOLTAREN [Concomitant]
     Indication: PAIN
     Dosage: 50 MG, 1X/DAY
     Route: 054
     Dates: start: 20100724, end: 20100806
  6. DALACIN [Concomitant]
     Indication: PNEUMONIA
     Dosage: 150 MG, 4X/DAY
     Route: 048
     Dates: start: 20100804, end: 20100808
  7. UREPEARL [Concomitant]
     Indication: ECZEMA
     Dosage: UNK
     Route: 003
     Dates: start: 20100722
  8. MAGNESIUM OXIDE [Concomitant]
     Indication: CONSTIPATION
     Dosage: 330 MG, 3X/DAY
     Route: 048
     Dates: start: 20100730, end: 20100819
  9. FRANDOL [Concomitant]
     Dosage: 40 MG, AS NEEDED
     Route: 003
     Dates: start: 20100727
  10. SUTENT [Suspect]
     Indication: RENAL CELL CARCINOMA
     Dosage: 50 MG, DAILY
     Route: 048
     Dates: start: 20100701, end: 20100806
  11. AMOBAN [Concomitant]
     Indication: INSOMNIA
     Dosage: 7.5 MG, 1X/DAY
     Route: 048
     Dates: start: 20100724, end: 20100805
  12. DIOVAN [Concomitant]
     Dosage: 40 MG, 1X/DAY
     Route: 048
     Dates: start: 20100726, end: 20100801
  13. DIOVAN [Concomitant]
     Dosage: 80 MG, 1X/DAY
     Route: 048
     Dates: start: 20100802, end: 20100809

REACTIONS (4)
  - TUMOUR LYSIS SYNDROME [None]
  - RENAL CELL CARCINOMA [None]
  - DISEASE PROGRESSION [None]
  - BLOOD PRESSURE INCREASED [None]
